FAERS Safety Report 5996125-X (Version None)
Quarter: 2008Q4

REPORT INFORMATION
  Report Type: 
  Country: None (occurrence: None)
  Receive Date: 20081212
  Receipt Date: 20080611
  Transmission Date: 20090506
  Serious: No
  Sender: FDA-Public Use
  Company Number: US-AMGEN-KDL286344

PATIENT
  Sex: Female

DRUGS (4)
  1. ENBREL [Suspect]
     Indication: PSORIATIC ARTHROPATHY
     Route: 058
     Dates: start: 20040601
  2. ENBREL [Suspect]
     Indication: PSORIASIS
  3. SULFASALAZINE [Concomitant]
  4. METHOTREXATE [Concomitant]

REACTIONS (2)
  - DIZZINESS [None]
  - VISUAL IMPAIRMENT [None]
